FAERS Safety Report 24713352 (Version 4)
Quarter: 2025Q3

REPORT INFORMATION
  Report Type: Report from Study
  Country: US (occurrence: US)
  Receive Date: 20241209
  Receipt Date: 20250919
  Transmission Date: 20251021
  Serious: Yes (Other)
  Sender: JAZZ
  Company Number: US-JAZZ PHARMACEUTICALS-2024-US-022933

PATIENT
  Age: 56 Year
  Sex: Female

DRUGS (12)
  1. SODIUM OXYBATE [Suspect]
     Active Substance: SODIUM OXYBATE
     Indication: Narcolepsy
  2. SODIUM OXYBATE [Suspect]
     Active Substance: SODIUM OXYBATE
     Indication: Cataplexy
     Dosage: 3.75G (FIRST DOSE AT BEDTIME AND SECOND DOSE 2.5-4HRS LATER)
  3. SODIUM OXYBATE [Suspect]
     Active Substance: SODIUM OXYBATE
     Indication: Somnolence
     Dosage: 4 GRAM, BID
  4. PAROXETINE HYDROCHLORIDE [Concomitant]
     Active Substance: PAROXETINE HYDROCHLORIDE
     Indication: Product used for unknown indication
  5. MODAFINIL [Concomitant]
     Active Substance: MODAFINIL
     Indication: Product used for unknown indication
  6. CLOBETASOL [Concomitant]
     Active Substance: CLOBETASOL
     Indication: Dermatitis contact
  7. CONCERTA [Concomitant]
     Active Substance: METHYLPHENIDATE HYDROCHLORIDE
     Indication: Product used for unknown indication
  8. LEVOTHYROXINE [Concomitant]
     Active Substance: LEVOTHYROXINE
     Indication: Product used for unknown indication
  9. PIROXICAM [Concomitant]
     Active Substance: PIROXICAM
     Indication: Product used for unknown indication
  10. PAXLOVID [Concomitant]
     Active Substance: NIRMATRELVIR\RITONAVIR
     Indication: Product used for unknown indication
  11. ROPINIROLE [Concomitant]
     Active Substance: ROPINIROLE
     Indication: Product used for unknown indication
  12. VITRON C [ASCORBIC ACID;IRON PENTACARBONYL] [Concomitant]
     Indication: Product used for unknown indication

REACTIONS (4)
  - Autoimmune disorder [Unknown]
  - Post-acute COVID-19 syndrome [Unknown]
  - Restless legs syndrome [Unknown]
  - Obstructive sleep apnoea syndrome [Unknown]

NARRATIVE: CASE EVENT DATE: 20241001
